FAERS Safety Report 4593401-2 (Version None)
Quarter: 2005Q1

REPORT INFORMATION
  Report Type: 
  Country: None (occurrence: None)
  Receive Date: 20050224
  Receipt Date: 20040601
  Transmission Date: 20050727
  Serious: No
  Sender: FDA-Public Use
  Company Number: US-BRISTOL-MYERS SQUIBB COMPANY-12608923

PATIENT
  Age: 36 Year
  Sex: Female
  Weight: 61 kg

DRUGS (4)
  1. EXCEDRIN (MIGRAINE) [Suspect]
     Indication: HEADACHE
     Route: 048
     Dates: start: 20040101
  2. SUDAFED 12 HOUR [Suspect]
     Indication: SINUS DISORDER
     Dates: start: 20040601
  3. SINGULAIR [Concomitant]
  4. FLONASE [Concomitant]

REACTIONS (3)
  - ASTHMA [None]
  - DIZZINESS [None]
  - TINNITUS [None]
